FAERS Safety Report 11020917 (Version 1)
Quarter: 2015Q2

REPORT INFORMATION
  Report Type: Spontaneous
  Country: US (occurrence: US)
  Receive Date: 20150413
  Receipt Date: 20150413
  Transmission Date: 20150821
  Serious: Yes (Hospitalization)
  Sender: FDA-Public Use
  Company Number: US-BAYER-2015-093127

PATIENT
  Age: 26 Year
  Sex: Female

DRUGS (1)
  1. MIRENA [Suspect]
     Active Substance: LEVONORGESTREL
     Dosage: UNK
     Route: 015
     Dates: start: 201108

REACTIONS (5)
  - Evans syndrome [Recovered/Resolved]
  - Thrombocytopenia [Recovered/Resolved]
  - Jaundice [Recovered/Resolved]
  - Asthenia [Recovered/Resolved]
  - Autoimmune haemolytic anaemia [Recovered/Resolved]
